FAERS Safety Report 21381600 (Version 1)
Quarter: 2022Q3

REPORT INFORMATION
  Report Type: Report from Study
  Country: CO (occurrence: CO)
  Receive Date: 20220927
  Receipt Date: 20220927
  Transmission Date: 20221027
  Serious: Yes (Hospitalization, Other)
  Sender: FDA-Public Use
  Company Number: CO-TAKEDA-2022TUS068184

PATIENT
  Age: 67 Year
  Sex: Female
  Weight: 58 kg

DRUGS (2)
  1. PONATINIB [Suspect]
     Active Substance: PONATINIB
     Indication: Chronic myeloid leukaemia
     Dosage: 15 MILLIGRAM, QD
     Route: 048
     Dates: start: 20211206, end: 20220520
  2. ENALAPRIL [Concomitant]
     Active Substance: ENALAPRIL
     Dosage: 5 MILLIGRAM
     Dates: start: 20210909

REACTIONS (1)
  - Bell^s palsy [Unknown]

NARRATIVE: CASE EVENT DATE: 20220514
